FAERS Safety Report 9133600 (Version 3)
Quarter: 2013Q2

REPORT INFORMATION
  Report Type: Spontaneous
  Country: JP (occurrence: JP)
  Receive Date: 20130301
  Receipt Date: 20130401
  Transmission Date: 20140414
  Serious: Yes (Life-Threatening, Hospitalization)
  Sender: FDA-Public Use
  Company Number: JP-ASTRAZENECA-2013SE13046

PATIENT
  Age: 78 Year
  Sex: Female
  Weight: 63 kg

DRUGS (8)
  1. ECARD [Suspect]
     Indication: HYPERTENSION
     Dosage: 1 DF DAILY
     Route: 048
     Dates: start: 20121213, end: 20130214
  2. TSUMURA SHAKUYAKUKANZOTO [Interacting]
     Indication: SCIATICA
     Route: 048
     Dates: start: 20121010, end: 20130215
  3. EDIROL [Concomitant]
     Indication: OSTEOPOROSIS
     Route: 048
     Dates: start: 20121114, end: 20130215
  4. OPALMON [Concomitant]
     Indication: VASCULAR INSUFFICIENCY
     Route: 048
     Dates: start: 20121114, end: 20130215
  5. LOXONIN [Concomitant]
     Indication: ANALGESIC THERAPY
     Route: 048
     Dates: start: 20121114, end: 20130215
  6. MUCOSTA [Concomitant]
     Indication: PROPHYLAXIS
     Route: 048
     Dates: start: 20121114, end: 20130215
  7. CALBLOCK [Concomitant]
     Indication: HYPERTENSION
     Route: 048
     Dates: start: 20130123, end: 20130215
  8. MAGNESIUM OXIDE [Concomitant]
     Indication: CONSTIPATION
     Route: 048
     Dates: start: 20130206, end: 20130215

REACTIONS (13)
  - Drug interaction [Recovering/Resolving]
  - Ventricular tachycardia [Recovered/Resolved]
  - Fall [Recovered/Resolved]
  - Altered state of consciousness [Recovered/Resolved]
  - Hypokalaemia [Recovering/Resolving]
  - Headache [Recovered/Resolved]
  - Contusion [None]
  - Laceration [None]
  - Extrasystoles [None]
  - Nausea [None]
  - Vomiting [None]
  - Apnoea [None]
  - Pulse absent [None]
